FAERS Safety Report 4502157-0 (Version None)
Quarter: 2004Q4

REPORT INFORMATION
  Report Type: 
  Country: None (occurrence: None)
  Receive Date: 20041116
  Receipt Date: 20041103
  Transmission Date: 20050328
  Serious: Yes (Hospitalization)
  Sender: FDA-Public Use
  Company Number: BE-JNJFOC-20041000044

PATIENT
  Age: 60 Year
  Sex: Male
  Weight: 72 kg

DRUGS (5)
  1. RISPERDAL CONSTA [Suspect]
     Indication: SCHIZOPHRENIA
     Route: 030
  2. RISPERDAL [Suspect]
     Indication: SCHIZOPHRENIA
     Route: 049
  3. DITROPAN [Concomitant]
     Indication: MICTURITION DISORDER
     Route: 049
  4. FLUDEX [Concomitant]
     Indication: HYPERTENSION
     Route: 049
  5. MOXON [Concomitant]
     Indication: HYPERTENSION
     Route: 049

REACTIONS (5)
  - EPILEPSY [None]
  - FALL [None]
  - HEAD INJURY [None]
  - NEOPLASM [None]
  - WOUND [None]
